FAERS Safety Report 7571949-6 (Version None)
Quarter: 2011Q2

REPORT INFORMATION
  Report Type: 
  Country: None (occurrence: None)
  Receive Date: 20110624
  Receipt Date: 20110309
  Transmission Date: 20111010
  Serious: No
  Sender: FDA-Public Use
  Company Number: A0917378A

PATIENT
  Age: 69 Year
  Sex: Female

DRUGS (2)
  1. VERAMYST [Suspect]
     Dosage: 2SPR PER DAY
     Route: 045
     Dates: end: 20100309
  2. AMLODIPINE BESYLATE [Concomitant]

REACTIONS (3)
  - DRUG INEFFECTIVE [None]
  - SINUSITIS [None]
  - NASAL CONGESTION [None]
